FAERS Safety Report 25890558 (Version 1)
Quarter: 2025Q4

REPORT INFORMATION
  Report Type: Spontaneous
  Country: GB (occurrence: GB)
  Receive Date: 20251007
  Receipt Date: 20251007
  Transmission Date: 20260118
  Serious: Yes (Other)
  Sender: SANDOZ
  Company Number: GB-BESINS-2024-02848

PATIENT
  Age: 51 Year
  Sex: Female
  Weight: 73 kg

DRUGS (27)
  1. ESTRADIOL [Suspect]
     Active Substance: ESTRADIOL
     Indication: Product used for unknown indication
     Dosage: TWO TWICE WEEKLY
     Route: 065
     Dates: start: 20240612
  2. ESTRADIOL [Suspect]
     Active Substance: ESTRADIOL
     Indication: Product used for unknown indication
     Dosage: ONE DAILY
     Route: 065
     Dates: start: 20240515
  3. ESTRADIOL [Suspect]
     Active Substance: ESTRADIOL
     Indication: Product used for unknown indication
     Dosage: ONE TWICE WEEKLY
     Route: 065
     Dates: start: 20240423
  4. ESTRADIOL [Suspect]
     Active Substance: ESTRADIOL
     Indication: Hormone replacement therapy
     Dosage: PL 28397/00023 PUMPS 1 WEEK
     Route: 065
     Dates: start: 20231004, end: 202310
  5. ESTRADIOL [Suspect]
     Active Substance: ESTRADIOL
     Dosage: PL 28397/00024 PUMPS DAILY
     Route: 065
     Dates: start: 202310
  6. ESTRADIOL [Suspect]
     Active Substance: ESTRADIOL
     Indication: Menopause
     Dosage: PL 28397/00022 DAILY
     Route: 065
     Dates: start: 20221026, end: 202310
  7. TESTOSTERONE [Suspect]
     Active Substance: TESTOSTERONE
     Indication: Hormone replacement therapy
     Dosage: 1 PUMP EVERY 4TH DAY
     Route: 065
     Dates: start: 20230322, end: 2023
  8. TESTOSTERONE [Suspect]
     Active Substance: TESTOSTERONE
     Dosage: 1 PUMP EVERY 4TH DAY
     Route: 065
     Dates: start: 20231016
  9. TESTOSTERONE [Suspect]
     Active Substance: TESTOSTERONE
     Dosage: TWICE A WEEK
     Route: 065
     Dates: start: 20231004, end: 202310
  10. TESTOSTERONE [Suspect]
     Active Substance: TESTOSTERONE
     Dosage: MORE THAN PRESCRIBED
     Route: 065
     Dates: start: 20240406
  11. UTROGESTAN [Suspect]
     Active Substance: PROGESTERONE
     Indication: Hormone replacement therapy
     Dosage: 1 AT NIGHT
     Route: 065
     Dates: start: 20230126
  12. VAGIFEM [Suspect]
     Active Substance: ESTRADIOL
     Indication: Hormone replacement therapy
     Dosage: TWICE WEEKLY
     Route: 065
     Dates: start: 20230320
  13. VAGIFEM [Suspect]
     Active Substance: ESTRADIOL
     Indication: Atrophy
     Dosage: UNK
     Route: 065
  14. DULOXETINE [Concomitant]
     Active Substance: DULOXETINE
     Indication: Product used for unknown indication
     Dosage: 1 A DAY
     Route: 065
     Dates: start: 20240111
  15. FAMOTIDINE [Concomitant]
     Active Substance: FAMOTIDINE
     Indication: Product used for unknown indication
     Dosage: ONE TWICE DAILY
     Route: 065
     Dates: start: 20240130
  16. GOSERELIN [Concomitant]
     Active Substance: GOSERELIN
     Indication: Product used for unknown indication
     Dosage: IMPLANT PRE-FILLED SYRINGES
     Route: 065
     Dates: start: 20230622
  17. INTRAROSA [Concomitant]
     Active Substance: PRASTERONE
     Indication: Product used for unknown indication
     Dosage: INSERT ONE DAILY
     Route: 065
     Dates: start: 20240124
  18. LANSOPRAZOLE [Concomitant]
     Active Substance: LANSOPRAZOLE
     Indication: Product used for unknown indication
     Dosage: UNK
     Route: 065
  19. POLYETHYLENE GLYCOL 3350\POTASSIUM CHLORIDE\SODIUM BICARBONATE\SODIUM [Concomitant]
     Active Substance: POLYETHYLENE GLYCOL 3350\POTASSIUM CHLORIDE\SODIUM BICARBONATE\SODIUM CHLORIDE
     Indication: Product used for unknown indication
     Dosage: 1 TO 3 SACHETS DAILY
     Route: 065
     Dates: start: 20231004
  20. NAPROXEN [Concomitant]
     Active Substance: NAPROXEN
     Indication: Product used for unknown indication
     Dosage: TAKE ONE TWICE DAILY AS REQUIRED WITH OR AFTER FOOD
     Route: 065
     Dates: start: 20230810
  21. OMEPRAZOLE [Concomitant]
     Active Substance: OMEPRAZOLE
     Indication: Product used for unknown indication
     Dosage: ONE DAILY
     Route: 065
     Dates: start: 20240130
  22. PIZOTYLINE [Concomitant]
     Active Substance: PIZOTYLINE
     Indication: Product used for unknown indication
     Dosage: UNK
     Route: 065
  23. PREGABALIN [Concomitant]
     Active Substance: PREGABALIN
     Indication: Product used for unknown indication
     Dosage: 25 MG BD
     Route: 065
     Dates: start: 20230530
  24. PREGABALIN [Concomitant]
     Active Substance: PREGABALIN
     Dosage: TDS
     Route: 065
  25. PREGABALIN [Concomitant]
     Active Substance: PREGABALIN
     Dosage: ADD IN DOUBLE DOSE
     Route: 065
  26. PROPRANOLOL [Concomitant]
     Active Substance: PROPRANOLOL HYDROCHLORIDE
     Indication: Product used for unknown indication
     Dosage: TWO TWICE DAILY
     Route: 065
     Dates: start: 20240423
  27. VITAMIN D [Concomitant]
     Active Substance: VITAMIN D NOS
     Indication: Product used for unknown indication
     Dosage: UNK
     Route: 065
     Dates: start: 20230322

REACTIONS (16)
  - Adenomyosis [Unknown]
  - Brain fog [Unknown]
  - Restless legs syndrome [Unknown]
  - Affective disorder [Unknown]
  - Vulvovaginal burning sensation [Unknown]
  - Blood oestrogen decreased [Unknown]
  - Arthralgia [Unknown]
  - Asthenia [Unknown]
  - Pain in extremity [Unknown]
  - Anxiety [Unknown]
  - Loss of libido [Unknown]
  - Poor quality sleep [Unknown]
  - Therapeutic product effect decreased [Unknown]
  - Intentional overdose [Unknown]
  - Off label use [Unknown]
  - Product label issue [Unknown]

NARRATIVE: CASE EVENT DATE: 20230322
